FAERS Safety Report 4687008-6 (Version None)
Quarter: 2005Q2

REPORT INFORMATION
  Report Type: 
  Country: None (occurrence: None)
  Receive Date: 20050606
  Receipt Date: 20050525
  Transmission Date: 20051028
  Serious: Yes (Hospitalization, Other)
  Sender: FDA-Public Use
  Company Number: 2005080157

PATIENT
  Sex: Female
  Weight: 73.9363 kg

DRUGS (3)
  1. CELEBREX [Suspect]
     Indication: OSTEOARTHRITIS
     Dosage: 200 MG (20 MG , 1 IN 1D), ORAL
     Route: 048
     Dates: end: 20030413
  2. ZIAC [Concomitant]
  3. IMITREX [Concomitant]

REACTIONS (9)
  - ARTHRALGIA [None]
  - ARTHRITIS [None]
  - BLOOD PRESSURE INCREASED [None]
  - CEREBROVASCULAR ACCIDENT [None]
  - CONDITION AGGRAVATED [None]
  - HEADACHE [None]
  - JOINT CREPITATION [None]
  - NAUSEA [None]
  - VOMITING [None]
